FAERS Safety Report 4663374-2 (Version None)
Quarter: 2005Q2

REPORT INFORMATION
  Report Type: 
  Country: None (occurrence: None)
  Receive Date: 20050502
  Receipt Date: 20050217
  Transmission Date: 20051028
  Serious: No
  Sender: FDA-Public Use
  Company Number: 200511287US

PATIENT
  Sex: Male

DRUGS (1)
  1. KETEK [Suspect]
     Indication: PNEUMONIA
     Dates: start: 20050215

REACTIONS (3)
  - COUGH [None]
  - PRODUCTIVE COUGH [None]
  - PULMONARY CONGESTION [None]
